FAERS Safety Report 19505313 (Version 1)
Quarter: 2021Q3

REPORT INFORMATION
  Report Type: Spontaneous
  Country: US (occurrence: US)
  Receive Date: 20210707
  Receipt Date: 20210707
  Transmission Date: 20211014
  Serious: No
  Sender: FDA-Public Use
  Company Number: None

PATIENT
  Age: 60 Year
  Sex: Female
  Weight: 60.3 kg

DRUGS (2)
  1. SYNTHROID [Concomitant]
     Active Substance: LEVOTHYROXINE SODIUM
  2. LIOTHYRONINE SOD 5MCG TAB [Suspect]
     Active Substance: LIOTHYRONINE SODIUM
     Indication: HYPOTHYROIDISM
     Dosage: ?          QUANTITY:1 TABLET(S);?
     Route: 048
     Dates: start: 20160301, end: 20210707

REACTIONS (8)
  - Headache [None]
  - Dyspnoea [None]
  - Nausea [None]
  - Dizziness [None]
  - Manufacturing issue [None]
  - Temperature intolerance [None]
  - Product quality issue [None]
  - Anxiety [None]

NARRATIVE: CASE EVENT DATE: 20210707
